FAERS Safety Report 6601673-5 (Version None)
Quarter: 2010Q1

REPORT INFORMATION
  Report Type: 
  Country: None (occurrence: None)
  Receive Date: 20100225
  Receipt Date: 20100211
  Transmission Date: 20100710
  Serious: Yes (Hospitalization)
  Sender: FDA-Public Use
  Company Number: US-CELGENEUS-163-21880-10011322

PATIENT
  Sex: Female

DRUGS (2)
  1. REVLIMID [Suspect]
     Indication: MULTIPLE MYELOMA
     Route: 048
     Dates: start: 20090507
  2. IV THERAPY [Concomitant]
     Indication: VIRAL INFECTION
     Route: 051
     Dates: start: 20100101, end: 20100101

REACTIONS (1)
  - VIRAL INFECTION [None]
